FAERS Safety Report 9838826 (Version 1)
Quarter: 2014Q1

REPORT INFORMATION
  Report Type: Spontaneous
  Country: US (occurrence: None)
  Receive Date: 20140117
  Receipt Date: 20140117
  Transmission Date: 20141002
  Serious: Yes (Other)
  Sender: FDA-Public Use
  Company Number: None

PATIENT
  Age: 57 Year
  Sex: Female

DRUGS (2)
  1. LATANOPROST [Suspect]
     Indication: OPEN ANGLE GLAUCOMA
     Dates: start: 20131209
  2. BRIMONIDINE [Suspect]
     Indication: OPEN ANGLE GLAUCOMA
     Dates: start: 20131209

REACTIONS (1)
  - Intraocular pressure increased [None]
